FAERS Safety Report 13042515 (Version 1)
Quarter: 2016Q4

REPORT INFORMATION
  Report Type: Spontaneous
  Country: US (occurrence: US)
  Receive Date: 20161219
  Receipt Date: 20161219
  Transmission Date: 20170207
  Serious: No
  Sender: FDA-Public Use
  Company Number: US-B.I. PHARMACEUTICALS,INC./RIDGEFIELD-2016-BI-085120

PATIENT
  Sex: Female

DRUGS (1)
  1. COMBIVENT [Suspect]
     Active Substance: ALBUTEROL SULFATE\IPRATROPIUM BROMIDE
     Indication: CHRONIC OBSTRUCTIVE PULMONARY DISEASE
     Dosage: FORM STRENGTH/ UNIT DOSE: 20 MCG / 100 MCG; DAILY DOSE: 80MCG/400 MCG; 1 INHALATION SPRAY FOUR TIMES
     Route: 055
     Dates: start: 2011

REACTIONS (1)
  - Product measured potency issue [Unknown]

NARRATIVE: CASE EVENT DATE: 2011
